FAERS Safety Report 13593891 (Version 2)
Quarter: 2017Q2

REPORT INFORMATION
  Report Type: Report from Study
  Country: None (occurrence: US)
  Receive Date: 20170530
  Receipt Date: 20170613
  Transmission Date: 20170830
  Serious: Yes (Other)
  Sender: FDA-Public Use
  Company Number: US-ABBVIE-17K-163-1990393-00

PATIENT
  Sex: Male

DRUGS (1)
  1. HUMIRA [Suspect]
     Active Substance: ADALIMUMAB
     Indication: COLITIS ULCERATIVE
     Route: 058
     Dates: start: 20170325

REACTIONS (3)
  - Pulmonary mass [Not Recovered/Not Resolved]
  - Inappropriate schedule of drug administration [Unknown]
  - Benign neoplasm of adrenal gland [Not Recovered/Not Resolved]

NARRATIVE: CASE EVENT DATE: 2017
